FAERS Safety Report 4681835-7 (Version None)
Quarter: 2005Q2

REPORT INFORMATION
  Report Type: 
  Country: None (occurrence: None)
  Receive Date: 20050602
  Receipt Date: 20050523
  Transmission Date: 20051028
  Serious: Yes (Disabling)
  Sender: FDA-Public Use
  Company Number: 2005033222

PATIENT
  Age: 88 Year
  Sex: Male
  Weight: 49 kg

DRUGS (5)
  1. CAMPTOSAR [Suspect]
     Indication: NON-SMALL CELL LUNG CANCER
     Dosage: 141 MG (141 MG, INTERMITTENT) - INTRAVENOUS
     Route: 042
     Dates: start: 20050111, end: 20050118
  2. NICARDIPINE HCL [Concomitant]
  3. ADETPHOS (ADENOSINE TRIPHOSPHATE, DISODIUM SALT) [Concomitant]
  4. MUCOSOLVAN (AMBROXOL HYDROCHLORIDE) [Concomitant]
  5. DASEN (SERRAPEPTASE) [Concomitant]

REACTIONS (19)
  - ABDOMINAL DISTENSION [None]
  - ABDOMINAL PAIN UPPER [None]
  - ANOREXIA [None]
  - BONE MARROW DEPRESSION [None]
  - CYANOSIS [None]
  - DEHYDRATION [None]
  - DIARRHOEA [None]
  - GASTROENTERITIS STAPHYLOCOCCAL [None]
  - ILEUS [None]
  - JOINT RANGE OF MOTION DECREASED [None]
  - MALAISE [None]
  - MELAENA [None]
  - PAIN IN EXTREMITY [None]
  - PERIPHERAL COLDNESS [None]
  - PERIPHERAL OCCLUSIVE DISEASE [None]
  - PNEUMONIA [None]
  - PROTHROMBIN TIME PROLONGED [None]
  - PYREXIA [None]
  - SUBILEUS [None]
